FAERS Safety Report 11526227 (Version 1)
Quarter: 2015Q3

REPORT INFORMATION
  Report Type: Spontaneous
  Country: IT (occurrence: IT)
  Receive Date: 20150919
  Receipt Date: 20150919
  Transmission Date: 20151125
  Serious: Yes (Other)
  Sender: FDA-Public Use
  Company Number: IT-CIPLA LTD.-2015IT07411

PATIENT

DRUGS (5)
  1. OXALIPLATIN. [Suspect]
     Active Substance: OXALIPLATIN
     Indication: COLORECTAL CANCER
     Dosage: 85 MG/M2, 3-HOUR INFUSION
  2. IRINOTECAN [Suspect]
     Active Substance: IRINOTECAN
     Indication: COLORECTAL CANCER
     Dosage: 180 MG/M2, 1-HOUR INFUSION
     Route: 042
  3. BEVACIZUMAB [Suspect]
     Active Substance: BEVACIZUMAB
     Indication: COLORECTAL CANCER
     Dosage: 5 MG/KG, UNK
     Route: 065
  4. CETUXIMAB [Suspect]
     Active Substance: CETUXIMAB
     Indication: COLORECTAL CANCER
     Dosage: 500 MG/M2, ON DAY 1
     Route: 065
  5. CAPACITABINE [Suspect]
     Active Substance: CAPECITABINE
     Indication: COLORECTAL CANCER
     Dosage: 1000 MG/M2, BID
     Route: 048

REACTIONS (1)
  - Toxicity to various agents [Unknown]
